FAERS Safety Report 17632006 (Version 2)
Quarter: 2020Q3

REPORT INFORMATION
  Report Type: Report from Study
  Country: JP (occurrence: JP)
  Receive Date: 20200406
  Receipt Date: 20200910
  Transmission Date: 20201102
  Serious: Yes (Hospitalization)
  Sender: FDA-Public Use
  Company Number: JP-CELGENEUS-JPN-20190504764

PATIENT
  Age: 75 Year
  Sex: Female
  Weight: 48.4 kg

DRUGS (8)
  1. DAIPHEN [Concomitant]
     Active Substance: SULFAMETHOXAZOLE\TRIMETHOPRIM
     Indication: INFECTION PROPHYLAXIS
     Dosage: UNKNOWN
     Route: 048
  2. ISTODAX [Suspect]
     Active Substance: ROMIDEPSIN
     Route: 041
     Dates: start: 20190604, end: 20190618
  3. ISTODAX [Suspect]
     Active Substance: ROMIDEPSIN
     Indication: ANGIOIMMUNOBLASTIC T-CELL LYMPHOMA
     Dosage: 20 MILLIGRAM
     Route: 041
     Dates: start: 20190505, end: 20190505
  4. ISTODAX [Suspect]
     Active Substance: ROMIDEPSIN
     Dosage: 20 MILLIGRAM
     Route: 041
     Dates: start: 20190513, end: 20190513
  5. ISTODAX [Suspect]
     Active Substance: ROMIDEPSIN
     Dosage: 10 MILLIGRAM
     Route: 041
     Dates: start: 20190521, end: 20190521
  6. DENOSIN [Concomitant]
     Indication: INFECTION PROPHYLAXIS
     Dosage: UNKNOWN
     Route: 065
  7. CEFTRIAXONE. [Concomitant]
     Active Substance: CEFTRIAXONE
     Indication: INFECTION PROPHYLAXIS
     Dosage: UNKNOWN
     Route: 048
  8. FLUCONAZOLE. [Suspect]
     Active Substance: FLUCONAZOLE
     Indication: INFECTION PROPHYLAXIS
     Dosage: UNKNOWN
     Route: 048

REACTIONS (5)
  - Tumour lysis syndrome [Recovered/Resolved]
  - Electrocardiogram QT prolonged [Recovered/Resolved]
  - Cytomegalovirus viraemia [Not Recovered/Not Resolved]
  - Oedema [Recovering/Resolving]
  - Sepsis [Recovered/Resolved]

NARRATIVE: CASE EVENT DATE: 20190506
